FAERS Safety Report 5795668-1 (Version None)
Quarter: 2008Q2

REPORT INFORMATION
  Report Type: 
  Country: None (occurrence: None)
  Receive Date: 20080630
  Receipt Date: 20080623
  Transmission Date: 20081010
  Serious: Yes (Other)
  Sender: FDA-Public Use
  Company Number: US-PFIZER INC-2008053228

PATIENT
  Sex: Female
  Weight: 68 kg

DRUGS (7)
  1. LIPITOR [Suspect]
     Indication: BLOOD TRIGLYCERIDES INCREASED
     Dates: start: 20080611, end: 20080620
  2. ATENOLOL [Concomitant]
  3. CLONAZEPAM [Concomitant]
  4. HYDROCODONE BITARTRATE + ACETAMINOPHEN [Concomitant]
  5. ALPRAZOLAM [Concomitant]
  6. AMITRIPTYLINE HCL [Concomitant]
  7. TRICOR [Concomitant]

REACTIONS (1)
  - PAIN [None]
